FAERS Safety Report 9494891 (Version 2)
Quarter: 2013Q3

REPORT INFORMATION
  Report Type: Spontaneous
  Country: NO (occurrence: NO)
  Receive Date: 20130903
  Receipt Date: 20130903
  Transmission Date: 20140515
  Serious: Yes (Hospitalization)
  Sender: FDA-Public Use
  Company Number: NO-PFIZER INC-2013215235

PATIENT
  Age: 70 Year
  Sex: Male

DRUGS (14)
  1. AZITROMAX [Suspect]
     Indication: PROPHYLAXIS
     Dosage: 0.5 DF (1/2 TABLET), ALTERNATE DAY
     Dates: start: 2010
  2. AZITROMAX [Suspect]
     Indication: CHRONIC OBSTRUCTIVE PULMONARY DISEASE
  3. PLAVIX [Concomitant]
     Dosage: 75 MG, 1X/DAY
  4. LIPITOR [Concomitant]
     Dosage: 40 MG, 1X/DAY
  5. LASIX [Concomitant]
     Dosage: 60 MG, 1X/DAY
  6. KALEORID [Concomitant]
     Dosage: 750 MG, 1X/DAY
  7. NUELIN DEPOT [Concomitant]
     Dosage: 350 MG, 2X/DAY
  8. IMDUR [Concomitant]
     Dosage: 60 MG, 1X/DAY
  9. KESTINE [Concomitant]
     Dosage: 10 MG, 1X/DAY
  10. SOMAC [Concomitant]
     Dosage: 40 MG, 1X/DAY
  11. ATROVENT [Concomitant]
     Dosage: UNK
  12. VENTOLINE [Concomitant]
     Dosage: UNK
  13. SERETIDE [Concomitant]
     Dosage: UNK
  14. MUCOMYST [Concomitant]
     Dosage: UNK

REACTIONS (2)
  - Chronic obstructive pulmonary disease [Unknown]
  - Off label use [Unknown]
